FAERS Safety Report 11053191 (Version 1)
Quarter: 2015Q2

REPORT INFORMATION
  Report Type: Spontaneous
  Country: US (occurrence: US)
  Receive Date: 20150421
  Receipt Date: 20150421
  Transmission Date: 20150821
  Serious: No
  Sender: FDA-Public Use
  Company Number: US-BAYER-2015-157422

PATIENT
  Age: 79 Year
  Sex: Female
  Weight: 84 kg

DRUGS (12)
  1. VITAMIN D3 [Concomitant]
     Active Substance: CHOLECALCIFEROL
  2. FISH OIL [Concomitant]
     Active Substance: FISH OIL
  3. PREMARIN [Concomitant]
     Active Substance: ESTROGENS, CONJUGATED
  4. HYDROCHLOROTHIAZIDE. [Concomitant]
     Active Substance: HYDROCHLOROTHIAZIDE
  5. POLY-IRON [POLYSACCHARIDE-IRON COMPLEX] [Concomitant]
  6. BAYER LOW DOSE [Suspect]
     Active Substance: ASPIRIN
     Dosage: 1 U, QD
     Route: 048
  7. BENICAR [Concomitant]
     Active Substance: OLMESARTAN MEDOXOMIL
  8. SIMVASTATIN. [Concomitant]
     Active Substance: SIMVASTATIN
  9. LISINOPRIL. [Concomitant]
     Active Substance: LISINOPRIL
  10. CITRACAL [Concomitant]
     Active Substance: CALCIUM CITRATE
  11. MIRALAX [Suspect]
     Active Substance: POLYETHYLENE GLYCOL 3350
     Indication: CONSTIPATION
     Dosage: 1 U, PRN
     Route: 048
     Dates: start: 20150414
  12. CLONIDINE. [Concomitant]
     Active Substance: CLONIDINE

REACTIONS (4)
  - Pain [Recovered/Resolved]
  - Intentional product misuse [Unknown]
  - Abdominal distension [Not Recovered/Not Resolved]
  - Expired product administered [Unknown]

NARRATIVE: CASE EVENT DATE: 20150201
